FAERS Safety Report 14009774 (Version 3)
Quarter: 2018Q1

REPORT INFORMATION
  Report Type: Spontaneous
  Country: JP (occurrence: JP)
  Receive Date: 20170925
  Receipt Date: 20180119
  Transmission Date: 20180508
  Serious: Yes (Hospitalization, Other)
  Sender: FDA-Public Use
  Company Number: PHJP2017JP026420

PATIENT
  Age: 42 Year
  Sex: Female
  Weight: 48.1 kg

DRUGS (10)
  1. ALLELOCK [Concomitant]
     Active Substance: OLOPATADINE HYDROCHLORIDE
     Indication: PRURITUS
     Dosage: 5 MG, BID
     Route: 048
     Dates: end: 20170722
  2. IPD [Concomitant]
     Active Substance: SUPLATAST TOSILATE
     Indication: PRURITUS
     Dosage: 100 MG, TID
     Route: 048
     Dates: end: 20170828
  3. ATARAX-P [Concomitant]
     Active Substance: HYDROXYZINE HYDROCHLORIDE
     Indication: PRURITUS
     Dosage: 25 MG, QID
     Route: 048
     Dates: end: 20170923
  4. TRAZODONE [Concomitant]
     Active Substance: TRAZODONE HYDROCHLORIDE
     Indication: ANXIETY
     Dosage: 25 MG, QD
     Route: 048
     Dates: end: 20170923
  5. PARIET [Concomitant]
     Active Substance: RABEPRAZOLE SODIUM
     Indication: GASTRIC ULCER
     Dosage: 10 MG, QD
     Route: 048
  6. BONALON [Concomitant]
     Active Substance: ALENDRONATE SODIUM
     Indication: OSTEOPOROSIS
     Dosage: 35 MG, QW
     Route: 048
  7. ROHYPNOL [Concomitant]
     Active Substance: FLUNITRAZEPAM
     Indication: ANXIETY
     Dosage: 1 MG, QD
     Route: 048
     Dates: end: 20170731
  8. NEORAL [Suspect]
     Active Substance: CYCLOSPORINE
     Indication: DRUG REACTION WITH EOSINOPHILIA AND SYSTEMIC SYMPTOMS
     Dosage: 100 MG, UNK
     Route: 048
     Dates: start: 201606, end: 20170720
  9. NEORAL [Interacting]
     Active Substance: CYCLOSPORINE
     Indication: CUTANEOUS LYMPHOMA
  10. TRAZODONE [Concomitant]
     Active Substance: TRAZODONE HYDROCHLORIDE
     Indication: INSOMNIA

REACTIONS (6)
  - Product use in unapproved indication [Unknown]
  - Lymphoma [Unknown]
  - Leukaemoid reaction [Recovering/Resolving]
  - Adrenal insufficiency [Unknown]
  - Papule [Unknown]
  - Drug interaction [Unknown]

NARRATIVE: CASE EVENT DATE: 201606
